FAERS Safety Report 5930318-2 (Version None)
Quarter: 2008Q4

REPORT INFORMATION
  Report Type: 
  Country: None (occurrence: None)
  Receive Date: 20081024
  Receipt Date: 20081017
  Transmission Date: 20090506
  Serious: Yes (Hospitalization)
  Sender: FDA-Public Use
  Company Number: US-MERCK-0810USA04066

PATIENT
  Age: 72 Year
  Sex: Male

DRUGS (4)
  1. PRINIVIL [Suspect]
     Route: 048
  2. HYDRODIURIL [Suspect]
     Route: 048
  3. ATENOLOL [Suspect]
     Indication: ATRIAL FIBRILLATION
     Route: 048
  4. ATENOLOL [Suspect]
     Route: 065

REACTIONS (4)
  - ANOREXIA [None]
  - INTERNATIONAL NORMALISED RATIO INCREASED [None]
  - RENAL ARTERY STENOSIS [None]
  - RENAL FAILURE ACUTE [None]
